FAERS Safety Report 8805181 (Version 1)
Quarter: 2012Q4

REPORT INFORMATION
  Report Type: Spontaneous
  Country: PL (occurrence: None)
  Receive Date: 20120917
  Receipt Date: 20120917
  Transmission Date: 20130627
  Serious: Yes (Hospitalization)
  Sender: FDA-Public Use
  Company Number: 1409567

PATIENT
  Age: 59 Year
  Sex: Female
  Weight: 70 kg

DRUGS (2)
  1. DOCETAXEL [Suspect]
     Indication: BREAST CANCER
     Route: 042
     Dates: start: 20120327, end: 20120625
  2. DOXORUBICIN [Concomitant]

REACTIONS (5)
  - General physical condition abnormal [None]
  - Erythema multiforme [None]
  - Scab [None]
  - Skin swelling [None]
  - Dyspnoea [None]
